FAERS Safety Report 9232785 (Version 2)
Quarter: 2013Q2

REPORT INFORMATION
  Report Type: Spontaneous
  Country: US (occurrence: US)
  Receive Date: 20130416
  Receipt Date: 20130604
  Transmission Date: 20140414
  Serious: Yes (Hospitalization)
  Sender: FDA-Public Use
  Company Number: US-JNJFOC-20130403747

PATIENT
  Age: 45 Year
  Sex: Female
  Weight: 45.81 kg

DRUGS (1)
  1. REMICADE [Suspect]
     Indication: CROHN^S DISEASE
     Dosage: LOW DOSAGE EVERY 6 TO 8 WEEKS.
     Route: 042
     Dates: start: 200911, end: 201007

REACTIONS (3)
  - Hepatic failure [Recovered/Resolved]
  - Liver transplant rejection [Recovered/Resolved]
  - Dyspnoea [Recovered/Resolved]
